FAERS Safety Report 8612104-8 (Version None)
Quarter: 2012Q3

REPORT INFORMATION
  Report Type: 
  Country: None (occurrence: None)
  Receive Date: 20120822
  Receipt Date: 20120815
  Transmission Date: 20120928
  Serious: Yes (Other)
  Sender: FDA-Public Use
  Company Number: US-TEVA-354307USA

PATIENT
  Sex: Male

DRUGS (7)
  1. VIAGRA [Concomitant]
  2. TRAMADOL HCL [Concomitant]
     Indication: PAIN
  3. HYDROCODONE [Concomitant]
  4. TRAZODONE HYDROCHLORIDE [Concomitant]
  5. AMANTADINE HCL [Concomitant]
     Dosage: 200 MILLIGRAM DAILY;
  6. TORADOL [Concomitant]
     Indication: PAIN
  7. COPAXONE [Suspect]
     Indication: MULTIPLE SCLEROSIS

REACTIONS (3)
  - PSYCHOTIC DISORDER [None]
  - HOMICIDE [None]
  - FATIGUE [None]
